FAERS Safety Report 7357916-6 (Version None)
Quarter: 2011Q1

REPORT INFORMATION
  Report Type: 
  Country: None (occurrence: None)
  Receive Date: 20110317
  Receipt Date: 20110308
  Transmission Date: 20110831
  Serious: Yes (Other)
  Sender: FDA-Public Use
  Company Number: JP-SANOFI-AVENTIS-2011SA013961

PATIENT
  Age: 60 Year
  Sex: Female
  Weight: 52 kg

DRUGS (7)
  1. ELPLAT [Suspect]
     Indication: COLON CANCER
     Route: 041
     Dates: start: 20100819, end: 20100819
  2. DEXAMETHASONE SODIUM PHOSPHATE [Concomitant]
     Indication: PREMEDICATION
     Route: 042
     Dates: start: 20100819, end: 20101115
  3. 5-FU [Suspect]
     Indication: COLON CANCER
     Route: 040
     Dates: start: 20100819, end: 20101115
  4. ELPLAT [Suspect]
     Route: 041
     Dates: start: 20100921, end: 20100921
  5. CALCIUM LEVOFOLINATE [Concomitant]
     Indication: COLON CANCER
     Route: 041
     Dates: start: 20100819, end: 20101115
  6. ELPLAT [Suspect]
     Route: 041
     Dates: start: 20101115, end: 20101115
  7. 5-FU [Suspect]
     Route: 040
     Dates: start: 20100819, end: 20101115

REACTIONS (1)
  - HEPATIC FUNCTION ABNORMAL [None]
